FAERS Safety Report 9495751 (Version 1)
Quarter: 2013Q3

REPORT INFORMATION
  Report Type: Spontaneous
  Country: CA (occurrence: CA)
  Receive Date: 20130903
  Receipt Date: 20130903
  Transmission Date: 20140515
  Serious: Yes (Hospitalization)
  Sender: FDA-Public Use
  Company Number: CA-ASTRAZENECA-2013SE65486

PATIENT
  Age: 78 Year
  Sex: Female

DRUGS (8)
  1. LOSEC [Suspect]
     Route: 048
     Dates: start: 1993, end: 20130822
  2. PLAVIX [Concomitant]
  3. ZANEX [Concomitant]
  4. INDAPAMIDE [Concomitant]
  5. LIPITOR [Concomitant]
  6. ATENOLOL [Concomitant]
  7. SUCRALFATE [Concomitant]
  8. RANITIDINE [Concomitant]

REACTIONS (5)
  - Venous occlusion [Unknown]
  - Pain [Unknown]
  - Discomfort [Unknown]
  - Sleep disorder due to a general medical condition [Unknown]
  - Drug dose omission [Unknown]
